FAERS Safety Report 9255534 (Version 1)
Quarter: 2013Q2

REPORT INFORMATION
  Report Type: Spontaneous
  Country: AU (occurrence: AU)
  Receive Date: 20130425
  Receipt Date: 20130425
  Transmission Date: 20140414
  Serious: Yes (Other)
  Sender: FDA-Public Use
  Company Number: PHHY2013AU036404

PATIENT
  Age: 32 Year
  Sex: Female

DRUGS (1)
  1. METOPROLOL [Suspect]
     Dosage: 25 MG
     Route: 048

REACTIONS (4)
  - Cardiac septal defect [Unknown]
  - Bradycardia [Unknown]
  - Electrocardiogram repolarisation abnormality [Unknown]
  - Electrocardiogram PR prolongation [Unknown]
